FAERS Safety Report 25629536 (Version 4)
Quarter: 2025Q3

REPORT INFORMATION
  Report Type: Report from Study
  Country: US (occurrence: US)
  Receive Date: 20250731
  Receipt Date: 20250912
  Transmission Date: 20251021
  Serious: No
  Sender: MALLINCKRODT
  Company Number: US-MALLINCKRODT-MNK202504656

PATIENT
  Age: 52 Year
  Sex: Male

DRUGS (1)
  1. CORTICOTROPIN [Suspect]
     Active Substance: CORTICOTROPIN
     Indication: Pulmonary sarcoidosis
     Route: 058

REACTIONS (5)
  - Renal function test abnormal [Unknown]
  - Illness [Recovering/Resolving]
  - Speech disorder [Unknown]
  - Vomiting [Unknown]
  - Headache [Unknown]
